FAERS Safety Report 4706568-X (Version None)
Quarter: 2005Q3

REPORT INFORMATION
  Report Type: 
  Country: None (occurrence: None)
  Receive Date: 20050705
  Receipt Date: 20050630
  Transmission Date: 20060218
  Serious: Yes (Hospitalization)
  Sender: FDA-Public Use
  Company Number: US-MERCK-0506USA04182

PATIENT
  Age: 52 Year
  Sex: Female

DRUGS (2)
  1. HYZAAR [Suspect]
     Indication: HYPERTENSION
     Route: 048
  2. PROPULSID [Suspect]
     Route: 048

REACTIONS (4)
  - BLOOD POTASSIUM DECREASED [None]
  - CARDIAC PACEMAKER INSERTION [None]
  - FALL [None]
  - SYNCOPE [None]
